FAERS Safety Report 18526168 (Version 1)
Quarter: 2020Q4

REPORT INFORMATION
  Report Type: Spontaneous
  Country: CN (occurrence: CN)
  Receive Date: 20201120
  Receipt Date: 20201120
  Transmission Date: 20210114
  Serious: Yes (Life-Threatening, Hospitalization, Other)
  Sender: FDA-Public Use
  Company Number: CN-UNITED THERAPEUTICS-UNT-2020-018026

PATIENT
  Age: 27 Year
  Sex: Female
  Weight: 47 kg

DRUGS (5)
  1. REMODULIN [Suspect]
     Active Substance: TREPROSTINIL
     Indication: PULMONARY ARTERIAL HYPERTENSION
     Dosage: 0.00125 ?G/KG, CONTINUING
     Route: 058
     Dates: start: 2019
  2. REMODULIN [Suspect]
     Active Substance: TREPROSTINIL
     Dosage: 0.017 ?G/KG, CONTINUING
     Route: 058
     Dates: start: 2019
  3. HEPARIN [Suspect]
     Active Substance: HEPARIN SODIUM
     Indication: ANTICOAGULANT THERAPY
     Dosage: UNK, INFUSION RATE OF 3-13 UNITS/KG/H
     Route: 065
     Dates: start: 2019, end: 2019
  4. AMBRISENTAN [Concomitant]
     Active Substance: AMBRISENTAN
     Indication: PULMONARY ARTERIAL HYPERTENSION
     Dosage: 5 MG, QD
     Route: 065
     Dates: start: 2019
  5. SILDENAFIL. [Concomitant]
     Active Substance: SILDENAFIL
     Indication: PRODUCT USED FOR UNKNOWN INDICATION
     Dosage: 25 MG, TID
     Route: 065
     Dates: start: 2019

REACTIONS (3)
  - Cardiac arrest [Unknown]
  - Heparin-induced thrombocytopenia [Recovered/Resolved]
  - Maternal exposure during pregnancy [Unknown]

NARRATIVE: CASE EVENT DATE: 2019
